FAERS Safety Report 19969155 (Version 1)
Quarter: 2021Q4

REPORT INFORMATION
  Report Type: Spontaneous
  Country: US (occurrence: US)
  Receive Date: 20211019
  Receipt Date: 20211019
  Transmission Date: 20220303
  Serious: No
  Sender: FDA-Public Use
  Company Number: US-PFIZER INC-202100923669

PATIENT
  Age: 40 Year
  Sex: Female

DRUGS (3)
  1. XELJANZ [Suspect]
     Active Substance: TOFACITINIB CITRATE
     Dosage: 10 MG
     Dates: start: 20210616
  2. XELJANZ [Suspect]
     Active Substance: TOFACITINIB CITRATE
     Dosage: 10 MG
     Dates: start: 20210710
  3. XELJANZ [Suspect]
     Active Substance: TOFACITINIB CITRATE
     Dosage: 5 MG
     Dates: start: 20210812, end: 20210819

REACTIONS (6)
  - Increased appetite [Unknown]
  - Dysuria [Not Recovered/Not Resolved]
  - Mouth ulceration [Not Recovered/Not Resolved]
  - Headache [Recovered/Resolved]
  - Sinusitis [Not Recovered/Not Resolved]
  - Urinary tract infection [Not Recovered/Not Resolved]

NARRATIVE: CASE EVENT DATE: 20210101
